FAERS Safety Report 19860953 (Version 1)
Quarter: 2021Q3

REPORT INFORMATION
  Report Type: Spontaneous
  Country: FR (occurrence: FR)
  Receive Date: 20210920
  Receipt Date: 20210920
  Transmission Date: 20211014
  Serious: Yes (Hospitalization)
  Sender: FDA-Public Use
  Company Number: FR-MYLANLABS-2021M1063154

PATIENT
  Age: 68 Year
  Sex: Female

DRUGS (1)
  1. LAMOTRIGINE. [Suspect]
     Active Substance: LAMOTRIGINE
     Indication: MIXED ANXIETY AND DEPRESSIVE DISORDER
     Dosage: 100 MILLIGRAM, QD
     Route: 048
     Dates: start: 20210225, end: 20210309

REACTIONS (2)
  - Fall [Recovered/Resolved]
  - Product prescribing error [Recovered/Resolved]

NARRATIVE: CASE EVENT DATE: 202102
